FAERS Safety Report 10935196 (Version 4)
Quarter: 2015Q3

REPORT INFORMATION
  Report Type: Report from Study
  Country: BR (occurrence: BR)
  Receive Date: 20150320
  Receipt Date: 20150806
  Transmission Date: 20151125
  Serious: Yes (Other)
  Sender: FDA-Public Use
  Company Number: PHHY2015BR031759

PATIENT
  Age: 32 Year
  Sex: Male
  Weight: 150 kg

DRUGS (3)
  1. TEGRETOL-XR [Suspect]
     Active Substance: CARBAMAZEPINE
     Indication: EPILEPSY
     Dosage: 4 DF, QD
     Route: 048
  2. RIVOTRIL [Concomitant]
     Active Substance: CLONAZEPAM
     Indication: EPILEPSY
     Dosage: 4 DF, QD
     Route: 048
  3. AMATO [Concomitant]
     Active Substance: TOPIRAMATE
     Indication: EPILEPSY
     Dosage: 4 DF, QD
     Route: 048

REACTIONS (10)
  - Malabsorption [Unknown]
  - General physical health deterioration [Recovering/Resolving]
  - Diarrhoea [Unknown]
  - Condition aggravated [Unknown]
  - Seizure [Recovered/Resolved]
  - Choking [Unknown]
  - Drug ineffective [Not Recovered/Not Resolved]
  - Oral administration complication [Unknown]
  - Gastrointestinal infection [Recovered/Resolved]
  - Epilepsy [Unknown]

NARRATIVE: CASE EVENT DATE: 20141222
